FAERS Safety Report 11952611 (Version 2)
Quarter: 2016Q1

REPORT INFORMATION
  Report Type: Report from Study
  Country: US (occurrence: US)
  Receive Date: 20160125
  Receipt Date: 20160125
  Transmission Date: 20160526
  Serious: Yes (Other)
  Sender: FDA-Public Use
  Company Number: US-BAXALTA-2016BLT000193

PATIENT
  Sex: Female

DRUGS (1)
  1. HYQVIA [Suspect]
     Active Substance: HUMAN IMMUNOGLOBULIN G\HYALURONIDASE RECOMBINANT HUMAN
     Indication: IMMUNODEFICIENCY COMMON VARIABLE
     Dosage: 35 G, EVERY 4 WK
     Route: 058
     Dates: start: 20151202

REACTIONS (4)
  - Injury [Unknown]
  - Cerebrovascular accident [Not Recovered/Not Resolved]
  - Fall [Not Recovered/Not Resolved]
  - Head injury [Unknown]
